FAERS Safety Report 21706471 (Version 1)
Quarter: 2022Q4

REPORT INFORMATION
  Report Type: Spontaneous
  Country: DE (occurrence: DE)
  Receive Date: 20221209
  Receipt Date: 20221209
  Transmission Date: 20230112
  Serious: Yes (Hospitalization)
  Sender: FDA-Public Use
  Company Number: DE-ADRED-05690-01

PATIENT
  Age: 95 Year
  Sex: Male
  Weight: 69 kg

DRUGS (6)
  1. IBUPROFEN [Suspect]
     Active Substance: IBUPROFEN
     Indication: Product used for unknown indication
     Dosage: QD (NK MG / DAY, 5X)
     Route: 048
  2. ASPIRIN [Suspect]
     Active Substance: ASPIRIN
     Indication: Product used for unknown indication
     Dosage: 100 MILLIGRAM (100 MG, 1-0-0-0)
     Route: 048
  3. DUTASTERIDE\TAMSULOSIN [Concomitant]
     Active Substance: DUTASTERIDE\TAMSULOSIN
     Dosage: 0.5|0.4 MG, 1-0-0-0
     Route: 048
  4. ATORVASTATIN [Concomitant]
     Active Substance: ATORVASTATIN
     Dosage: 20 MILLIGRAM (20 MG, 1-0-0-0)
     Route: 048
  5. RAMIPRIL [Concomitant]
     Active Substance: RAMIPRIL
     Dosage: 5 MILLIGRAM (5 MG, 1-0-0-0)
     Route: 048
  6. LERCANIDIPINE [Concomitant]
     Active Substance: LERCANIDIPINE
     Dosage: 10 MILLIGRAM (10 MG, 1-0-0-0)
     Route: 048

REACTIONS (7)
  - General physical health deterioration [Unknown]
  - Condition aggravated [Unknown]
  - Pallor [Unknown]
  - Anaemia [Unknown]
  - Haematochezia [Unknown]
  - Melaena [Unknown]
  - Upper gastrointestinal haemorrhage [Unknown]
